FAERS Safety Report 12484605 (Version 4)
Quarter: 2017Q4

REPORT INFORMATION
  Report Type: Spontaneous
  Country: US (occurrence: US)
  Receive Date: 20160621
  Receipt Date: 20171208
  Transmission Date: 20180320
  Serious: Yes (Other)
  Sender: FDA-Public Use
  Company Number: US-PFIZER INC-2016299170

PATIENT
  Age: 25 Year
  Sex: Female

DRUGS (6)
  1. NICOTINE. [Suspect]
     Active Substance: NICOTINE
     Dosage: UNK
  2. HEROIN [Suspect]
     Active Substance: DIAMORPHINE
     Dosage: UNK
  3. GABAPENTIN. [Suspect]
     Active Substance: GABAPENTIN
     Dosage: UNK
  4. CITALOPRAM [Suspect]
     Active Substance: CITALOPRAM HYDROBROMIDE
     Dosage: UNK
  5. TRAZODONE [Suspect]
     Active Substance: TRAZODONE HYDROCHLORIDE
     Dosage: UNK
  6. CLONAZEPAM. [Suspect]
     Active Substance: CLONAZEPAM
     Dosage: UNK

REACTIONS (3)
  - Myocardial stunning [Recovering/Resolving]
  - Respiratory failure [Recovered/Resolved]
  - Overdose [Unknown]
